FAERS Safety Report 8440529-2 (Version None)
Quarter: 2012Q2

REPORT INFORMATION
  Report Type: 
  Country: None (occurrence: None)
  Receive Date: 20120615
  Receipt Date: 20120611
  Transmission Date: 20120825
  Serious: No
  Sender: FDA-Public Use
  Company Number: US-PFIZER INC-2012140406

PATIENT
  Sex: Male
  Weight: 81.633 kg

DRUGS (2)
  1. METOPROLOL [Concomitant]
     Indication: ARRHYTHMIA
     Dosage: 25 MG TWO TIMES A DAY
  2. LATANOPROST [Suspect]
     Indication: GLAUCOMA
     Dosage: ONE DROP IN EACH EYE DAILY
     Route: 047
     Dates: start: 20120420, end: 20120604

REACTIONS (5)
  - OCULAR HYPERAEMIA [None]
  - EYE IRRITATION [None]
  - FEELING ABNORMAL [None]
  - EYE ALLERGY [None]
  - DEPRESSED MOOD [None]
